FAERS Safety Report 8887118 (Version 1)
Quarter: 2012Q4

REPORT INFORMATION
  Report Type: 
  Country: CA (occurrence: CA)
  Receive Date: 20121105
  Receipt Date: 20121105
  Transmission Date: 20130627
  Serious: Yes (Hospitalization, Other)
  Sender: FDA-Public Use
  Company Number: PHHY2012CA100621

PATIENT

DRUGS (2)
  1. EXELON PATCH [Suspect]
     Route: 062
  2. COUMADIN [Interacting]

REACTIONS (2)
  - Atrial fibrillation [Unknown]
  - Drug interaction [Unknown]
